FAERS Safety Report 4968211-4 (Version None)
Quarter: 2006Q1

REPORT INFORMATION
  Report Type: 
  Country: None (occurrence: None)
  Receive Date: 20060201
  Receipt Date: 20051009
  Transmission Date: 20060701
  Serious: No
  Sender: FDA-Public Use
  Company Number: 2005PV003039

PATIENT
  Age: 44 Year
  Sex: Female
  Weight: 124.7392 kg

DRUGS (3)
  1. BYETTA [Suspect]
     Indication: DIABETES MELLITUS NON-INSULIN-DEPENDENT
     Dosage: 5 MCG;BID;SC
     Route: 058
     Dates: start: 20050928
  2. AVANDIA [Concomitant]
  3. GLUCOPHAGE XR [Concomitant]

REACTIONS (7)
  - BLOOD GLUCOSE INCREASED [None]
  - DECREASED APPETITE [None]
  - INCREASED APPETITE [None]
  - INJECTION SITE PAIN [None]
  - NAUSEA [None]
  - UNDERDOSE [None]
  - WEIGHT DECREASED [None]
